FAERS Safety Report 10642477 (Version 1)
Quarter: 2014Q4

REPORT INFORMATION
  Report Type: Spontaneous
  Country: US (occurrence: None)
  Receive Date: 20141208
  Receipt Date: 20141208
  Transmission Date: 20150529
  Serious: Yes (Other)
  Sender: FDA-Public Use
  Company Number: 2014-US-015772

PATIENT
  Sex: Female
  Weight: 112.5 kg

DRUGS (1)
  1. XYREM [Suspect]
     Active Substance: SODIUM OXYBATE
     Indication: FIBROMYALGIA
     Dosage: 2.25 G, BID, ORAL
     Route: 048
     Dates: start: 2012

REACTIONS (2)
  - Thyroid neoplasm [None]
  - Off label use [None]
